FAERS Safety Report 6469099-5 (Version None)
Quarter: 2009Q4

REPORT INFORMATION
  Report Type: 
  Country: None (occurrence: None)
  Receive Date: 20091203
  Receipt Date: 20071115
  Transmission Date: 20100525
  Serious: Yes (Other)
  Sender: FDA-Public Use
  Company Number: US-ELI_LILLY_AND_COMPANY-US200706003577

PATIENT
  Sex: Male
  Weight: 138.32 kg

DRUGS (14)
  1. BYETTA [Suspect]
     Indication: TYPE 2 DIABETES MELLITUS
     Dosage: 5 UG, 2/D
     Route: 058
     Dates: start: 20050720, end: 20050820
  2. BYETTA [Suspect]
     Dosage: 10 UG, 2/D
     Route: 058
     Dates: start: 20050820
  3. ACTOS [Concomitant]
     Indication: TYPE 2 DIABETES MELLITUS
     Dosage: UNK, UNKNOWN
     Route: 048
     Dates: start: 20051001
  4. GLUCOTROL [Concomitant]
     Dosage: 5 MG, 2/D
     Route: 065
     Dates: start: 20060419
  5. VYTORIN [Concomitant]
     Indication: BLOOD CHOLESTEROL
  6. ZESTRIL [Concomitant]
     Indication: BLOOD PRESSURE INCREASED
     Dosage: 20 MG, UNKNOWN
     Route: 048
     Dates: start: 20051101
  7. NORVASC [Concomitant]
     Indication: BLOOD PRESSURE
  8. HYDROCHLOROTHIAZIDE [Concomitant]
     Indication: BLOOD PRESSURE
  9. GLUCOPHAGE [Concomitant]
     Dosage: 2 G, UNKNOWN
     Route: 065
     Dates: start: 20050720, end: 20060824
  10. GLUCOPHAGE [Concomitant]
     Dosage: UNK, UNKNOWN
     Route: 065
  11. ZOCOR [Concomitant]
     Dosage: 40 UG, UNKNOWN
     Route: 065
     Dates: start: 20050720
  12. SYNTHROID [Concomitant]
     Indication: HYPOTHYROIDISM
     Dosage: 0.05 MG, UNKNOWN
     Route: 048
     Dates: start: 20061101
  13. LYRICA [Concomitant]
     Dosage: 150 MG, 2/D
     Route: 065
     Dates: start: 20060419
  14. CADUET [Concomitant]
     Indication: BLOOD PRESSURE INCREASED
     Dosage: UNK, UNKNOWN
     Route: 048
     Dates: start: 20070101

REACTIONS (6)
  - ABDOMINAL PAIN UPPER [None]
  - INJECTION SITE HAEMATOMA [None]
  - INJECTION SITE PAIN [None]
  - PANCREATIC ENZYMES INCREASED [None]
  - PANCREATITIS [None]
  - WEIGHT DECREASED [None]
